FAERS Safety Report 7249076-7 (Version None)
Quarter: 2011Q1

REPORT INFORMATION
  Report Type: 
  Country: None (occurrence: None)
  Receive Date: 20110128
  Receipt Date: 20100914
  Transmission Date: 20110831
  Serious: Yes (Hospitalization, Other)
  Sender: FDA-Public Use
  Company Number: US-BAYER-201029493NA

PATIENT
  Sex: Female
  Weight: 91 kg

DRUGS (2)
  1. YAZ [Suspect]
     Indication: PREMENSTRUAL SYNDROME
     Dosage: UNK UNK, QD
     Dates: start: 20030101, end: 20070801
  2. YAZ [Suspect]
     Indication: ACNE

REACTIONS (13)
  - CHOLECYSTITIS [None]
  - DIARRHOEA [None]
  - HEADACHE [None]
  - HEPATIC STEATOSIS [None]
  - LIVER FUNCTION TEST ABNORMAL [None]
  - CHEST PAIN [None]
  - NAUSEA [None]
  - OCULAR ICTERUS [None]
  - ABDOMINAL PAIN LOWER [None]
  - VOMITING [None]
  - CHOLELITHIASIS [None]
  - PANCREATITIS [None]
  - ABDOMINAL PAIN UPPER [None]
